FAERS Safety Report 6691680-9 (Version None)
Quarter: 2010Q2

REPORT INFORMATION
  Report Type: 
  Country: None (occurrence: None)
  Receive Date: 20100422
  Receipt Date: 20090407
  Transmission Date: 20101027
  Serious: Yes (Other)
  Sender: FDA-Public Use
  Company Number: US-ASTRAZENECA-2009UW08690

PATIENT
  Sex: Male

DRUGS (6)
  1. TOPROL-XL [Suspect]
     Route: 048
  2. ACCUPRIL [Concomitant]
  3. LOVASTATIN [Concomitant]
  4. NORVASC [Concomitant]
  5. OXYCODONE [Concomitant]
  6. PLAVIX [Concomitant]

REACTIONS (1)
  - LOSS OF CONSCIOUSNESS [None]
